FAERS Safety Report 17516016 (Version 1)
Quarter: 2020Q1

REPORT INFORMATION
  Report Type: Report from Study
  Country: GB (occurrence: GB)
  Receive Date: 20200309
  Receipt Date: 20200309
  Transmission Date: 20200409
  Serious: Yes (Congenital Anomaly, Other)
  Sender: FDA-Public Use
  Company Number: GB-MYLANLABS-2020M1026322

PATIENT

DRUGS (4)
  1. COBICISTAT W/DARUNAVIR [Suspect]
     Active Substance: COBICISTAT\DARUNAVIR ETHANOLATE
     Indication: HIV INFECTION
     Dosage: 1 DOSAGE FORM, QD (1 DOSAGE FORM, ONCE A DAY)
     Route: 064
  2. PREZCOBIX [Suspect]
     Active Substance: COBICISTAT\DARUNAVIR ETHANOLATE
     Indication: HIV INFECTION
     Dosage: 1 DOSAGE FORM, QD
     Route: 064
  3. ABACAVIR,LAMIVUDINE MYLAN [Suspect]
     Active Substance: ABACAVIR\LAMIVUDINE
     Indication: HIV INFECTION
     Dosage: 1 DOSAGE FORM, QD (1 DOSAGE FORM, ONCE A DAY)
     Route: 064
  4. DARUNAVIR MYLAN [Suspect]
     Active Substance: DARUNAVIR
     Indication: HIV INFECTION
     Dosage: UNK
     Route: 064

REACTIONS (4)
  - Brain injury [Unknown]
  - Gastroschisis [Unknown]
  - Foetal growth restriction [Unknown]
  - Foetal exposure during pregnancy [Recovered/Resolved]

NARRATIVE: CASE EVENT DATE: 20190107
